FAERS Safety Report 18845490 (Version 1)
Quarter: 2021Q1

REPORT INFORMATION
  Report Type: Report from Study
  Country: US (occurrence: US)
  Receive Date: 20210203
  Receipt Date: 20210203
  Transmission Date: 20210419
  Serious: No
  Sender: FDA-Public Use
  Company Number: US-EXELIXIS-CABO-20029673

PATIENT
  Sex: Male

DRUGS (3)
  1. CAPRELSA [Concomitant]
     Active Substance: VANDETANIB
  2. COMETRIQ [Suspect]
     Active Substance: CABOZANTINIB S-MALATE
     Dosage: 100 MG, QD
     Route: 048
     Dates: start: 202006
  3. COMETRIQ [Suspect]
     Active Substance: CABOZANTINIB S-MALATE
     Indication: THYROID CANCER
     Dosage: 140 MG, QD
     Route: 048
     Dates: start: 20200430, end: 202006

REACTIONS (6)
  - Dizziness [Unknown]
  - Dysphagia [Recovering/Resolving]
  - Weight fluctuation [Recovering/Resolving]
  - Fatigue [Unknown]
  - Diarrhoea [Recovering/Resolving]
  - Oropharyngeal pain [Recovering/Resolving]
